FAERS Safety Report 19444904 (Version 1)
Quarter: 2021Q2

REPORT INFORMATION
  Report Type: Spontaneous
  Country: US (occurrence: US)
  Receive Date: 20210621
  Receipt Date: 20210621
  Transmission Date: 20210717
  Serious: Yes (Other)
  Sender: FDA-Public Use
  Company Number: US-TAKEDA-2021TUS038101

PATIENT
  Sex: Female

DRUGS (1)
  1. MOTEGRITY [Suspect]
     Active Substance: PRUCALOPRIDE SUCCINATE
     Indication: PRODUCT USED FOR UNKNOWN INDICATION
     Route: 065

REACTIONS (14)
  - Presyncope [Unknown]
  - Productive cough [Unknown]
  - Headache [Unknown]
  - Dizziness [Unknown]
  - Myalgia [Unknown]
  - Painful respiration [Unknown]
  - Taste disorder [Unknown]
  - Nausea [Unknown]
  - Bone pain [Unknown]
  - Throat irritation [Unknown]
  - Chest pain [Unknown]
  - Cough [Unknown]
  - Intestinal obstruction [Unknown]
  - Diarrhoea [Unknown]
